FAERS Safety Report 9193985 (Version 3)
Quarter: 2013Q3

REPORT INFORMATION
  Report Type: Spontaneous
  Country: TR (occurrence: TR)
  Receive Date: 20130327
  Receipt Date: 20130805
  Transmission Date: 20140515
  Serious: Yes (Death, Hospitalization)
  Sender: FDA-Public Use
  Company Number: CHNY2013TR000866

PATIENT
  Age: 28 Year
  Sex: Male
  Weight: 70 kg

DRUGS (1)
  1. THERAFLU FORTE [Suspect]
     Indication: INFLUENZA
     Dosage: 2 DF, ONCE/SINGLE
     Dates: start: 201112

REACTIONS (7)
  - Poisoning [Fatal]
  - Brain death [Fatal]
  - Fall [Unknown]
  - Foaming at mouth [Unknown]
  - Loss of consciousness [Unknown]
  - Cardiac arrest [Unknown]
  - Brain oedema [Unknown]
